FAERS Safety Report 11423143 (Version 1)
Quarter: 2015Q3

REPORT INFORMATION
  Report Type: Spontaneous
  Country: US (occurrence: US)
  Receive Date: 20150827
  Receipt Date: 20150827
  Transmission Date: 20151125
  Serious: No
  Sender: FDA-Public Use
  Company Number: US-GLAXOSMITHKLINE-US2015GSK120520

PATIENT
  Age: 48 Year
  Sex: Female

DRUGS (2)
  1. TAFINLAR [Suspect]
     Active Substance: DABRAFENIB MESYLATE
     Indication: MALIGNANT MELANOMA
     Dosage: 150 MG, BID
     Route: 048
  2. MEKINIST [Suspect]
     Active Substance: TRAMETINIB DIMETHYL SULFOXIDE
     Indication: MALIGNANT MELANOMA
     Dosage: 4 MG, BID
     Route: 048

REACTIONS (10)
  - Fatigue [Unknown]
  - Drug dose omission [Unknown]
  - Tooth infection [Recovered/Resolved]
  - Nausea [Unknown]
  - Dizziness [Unknown]
  - Parosmia [Unknown]
  - Memory impairment [Unknown]
  - Headache [Unknown]
  - Thirst [Unknown]
  - Pyrexia [Unknown]
